FAERS Safety Report 21686082 (Version 2)
Quarter: 2022Q4

REPORT INFORMATION
  Report Type: Spontaneous
  Country: US (occurrence: US)
  Receive Date: 20221206
  Receipt Date: 20221215
  Transmission Date: 20230113
  Serious: No
  Sender: FDA-Public Use
  Company Number: US-ABBVIE-4181163

PATIENT
  Sex: Male

DRUGS (1)
  1. TRICOR [Suspect]
     Active Substance: FENOFIBRATE
     Indication: Blood triglycerides increased
     Dosage: 145 MILLIGRAM
     Route: 048

REACTIONS (1)
  - Product use complaint [Unknown]
